FAERS Safety Report 25128991 (Version 1)
Quarter: 2025Q1

REPORT INFORMATION
  Report Type: Spontaneous
  Country: US (occurrence: US)
  Receive Date: 20250327
  Receipt Date: 20250327
  Transmission Date: 20250409
  Serious: No
  Sender: SANOFI AVENTIS
  Company Number: US-SA-2025SA088054

PATIENT
  Age: 63 Year
  Sex: Female
  Weight: 78.64 kg

DRUGS (14)
  1. DUPIXENT [Suspect]
     Active Substance: DUPILUMAB
     Indication: Chronic rhinosinusitis with nasal polyps
     Dosage: 300 MG, QOW
     Route: 058
     Dates: start: 20230711, end: 202503
  2. DUPIXENT [Suspect]
     Active Substance: DUPILUMAB
     Indication: Asthma
  3. ZETIA [Concomitant]
     Active Substance: EZETIMIBE
  4. OMEGA-3 ACIDS [Concomitant]
     Active Substance: OMEGA-3 FATTY ACIDS
  5. CETIRIZINE HCL [Concomitant]
     Active Substance: CETIRIZINE HYDROCHLORIDE
  6. PRAVASTATIN SODIUM [Concomitant]
     Active Substance: PRAVASTATIN SODIUM
  7. ALLOPURINOL [Concomitant]
     Active Substance: ALLOPURINOL
  8. METHOCARBAMOL [Concomitant]
     Active Substance: METHOCARBAMOL
  9. TYLENOL [Concomitant]
     Active Substance: ACETAMINOPHEN
  10. MAGNESIUM [Concomitant]
     Active Substance: MAGNESIUM
  11. VITAMIN D [Concomitant]
     Active Substance: VITAMIN D NOS
  12. ZYRTEC [Concomitant]
     Active Substance: CETIRIZINE HYDROCHLORIDE
  13. FAMOTIDINE [Concomitant]
     Active Substance: FAMOTIDINE
  14. SINGULAIR [Concomitant]
     Active Substance: MONTELUKAST SODIUM

REACTIONS (2)
  - Illness [Not Recovered/Not Resolved]
  - Dysphonia [Not Recovered/Not Resolved]

NARRATIVE: CASE EVENT DATE: 20250301
